FAERS Safety Report 25986484 (Version 1)
Quarter: 2025Q4

REPORT INFORMATION
  Report Type: Spontaneous
  Country: EU (occurrence: EU)
  Receive Date: 20251031
  Receipt Date: 20251031
  Transmission Date: 20260118
  Serious: Yes (Life-Threatening)
  Sender: AMGEN
  Company Number: None

PATIENT
  Age: 55 Year
  Sex: Male
  Weight: 80 kg

DRUGS (2)
  1. APREMILAST [Suspect]
     Active Substance: APREMILAST
     Indication: Psoriasis
     Dosage: UNK
     Route: 048
     Dates: start: 20211208
  2. BETAMETHASONE [Concomitant]
     Active Substance: BETAMETHASONE
     Dosage: SCHUIM, 0,5 MG (MILLIGRAM)/50 MUG/G (MICROGRAM PER GRAM)
     Route: 065

REACTIONS (1)
  - Metastatic malignant melanoma [Recovering/Resolving]
